FAERS Safety Report 4705922-X (Version None)
Quarter: 2005Q2

REPORT INFORMATION
  Report Type: 
  Country: None (occurrence: None)
  Receive Date: 20050630
  Receipt Date: 20050617
  Transmission Date: 20051028
  Serious: Yes (Hospitalization)
  Sender: FDA-Public Use
  Company Number: 11649

PATIENT
  Age: 49 Year
  Sex: Female

DRUGS (8)
  1. METHOTREXATE [Suspect]
     Indication: BREAST CANCER
     Dosage: 51 MG/M2 IV
     Route: 042
     Dates: start: 20050318
  2. FLUOROURACIL [Suspect]
     Indication: BREAST CANCER
     Dosage: 600 MG/M2 IV
     Route: 042
     Dates: start: 20050318
  3. EPIRUBICIN [Suspect]
     Dates: start: 20040224
  4. CYCLOPHOSPHAMIDE [Suspect]
     Indication: BREAST CANCER
     Dosage: 750 MG/M2 IV
     Route: 042
     Dates: start: 20050318
  5. LANSOPRAZOLE [Concomitant]
  6. WARFARIN [Concomitant]
  7. BECLOMETHASONE DIPROPIONATE [Concomitant]
  8. CYCLIZINE [Concomitant]

REACTIONS (8)
  - CHILLS [None]
  - CONFUSIONAL STATE [None]
  - LEUKOPENIA [None]
  - NAUSEA [None]
  - NEUTROPENIA [None]
  - PYREXIA [None]
  - THROMBOCYTOPENIA [None]
  - VOMITING [None]
